FAERS Safety Report 6251216-3 (Version None)
Quarter: 2009Q2

REPORT INFORMATION
  Report Type: 
  Country: None (occurrence: None)
  Receive Date: 20090630
  Receipt Date: 20090623
  Transmission Date: 20091009
  Serious: Yes (Other)
  Sender: FDA-Public Use
  Company Number: US-GENENTECH-283500

PATIENT
  Sex: Male
  Weight: 69.841 kg

DRUGS (1)
  1. XOLAIR [Suspect]
     Indication: ASTHMA
     Dosage: 150 MG, Q4W
     Route: 058
     Dates: start: 20080305

REACTIONS (3)
  - DYSPNOEA [None]
  - URTICARIA [None]
  - WHEEZING [None]
